FAERS Safety Report 18020677 (Version 1)
Quarter: 2020Q3

REPORT INFORMATION
  Report Type: Spontaneous
  Country: DK (occurrence: DK)
  Receive Date: 20200714
  Receipt Date: 20200714
  Transmission Date: 20201103
  Serious: Yes (Hospitalization)
  Sender: FDA-Public Use
  Company Number: DK-PFIZER INC-2020267342

PATIENT
  Age: 61 Year
  Sex: Male

DRUGS (8)
  1. PANTOPRAZOLE [Concomitant]
     Active Substance: PANTOPRAZOLE
     Dosage: 40 MG
     Dates: start: 20190724
  2. PARACETAMOL [Concomitant]
     Active Substance: ACETAMINOPHEN
     Dosage: 5 MG
     Dates: start: 20190925
  3. NICOTINE. [Concomitant]
     Active Substance: NICOTINE
     Dosage: 15/16 MG
     Dates: start: 20200529
  4. ZESSLY [Suspect]
     Active Substance: INFLIXIMAB
     Indication: RHEUMATOID ARTHRITIS
     Dosage: UNK
     Route: 042
     Dates: start: 20200122, end: 20200504
  5. FOLIMET [Concomitant]
     Active Substance: FOLIC ACID
     Dosage: 5 MG
     Dates: start: 20191028
  6. METHOTREXAT [Concomitant]
     Active Substance: METHOTREXATE
     Dosage: 20 MG
  7. CALCIUM + VITAMIN D [CALCIUM CITRATE;COLECALCIFEROL] [Concomitant]
     Dosage: UNK
     Dates: start: 20190925
  8. PREDNISOLONE. [Concomitant]
     Active Substance: PREDNISOLONE
     Dosage: UNK

REACTIONS (7)
  - Pyrexia [Unknown]
  - General physical health deterioration [Unknown]
  - Hot flush [Unknown]
  - Arthralgia [Unknown]
  - C-reactive protein increased [Unknown]
  - Hyperhidrosis [Unknown]
  - Chills [Unknown]

NARRATIVE: CASE EVENT DATE: 202005
